FAERS Safety Report 6623863-8 (Version None)
Quarter: 2010Q1

REPORT INFORMATION
  Report Type: 
  Country: None (occurrence: None)
  Receive Date: 20100310
  Receipt Date: 20100301
  Transmission Date: 20100710
  Serious: Yes (Other)
  Sender: FDA-Public Use
  Company Number: PHHY2010JP12858

PATIENT
  Age: 76 Year
  Sex: Female

DRUGS (4)
  1. LOCHOL [Suspect]
     Indication: HYPERLIPIDAEMIA
     Dosage: 20 MG DAILY ONE DOSE AFTER THE EVENING MEAL
     Route: 048
     Dates: start: 20100219
  2. LOCHOL [Suspect]
     Indication: HYPERCHOLESTEROLAEMIA
     Dosage: 20 MG AS A WEAK DRUG
     Route: 048
     Dates: end: 20100226
  3. LIPITOR [Concomitant]
     Dosage: UNK
     Route: 048
     Dates: start: 20100205, end: 20100218
  4. METHYCOBAL [Concomitant]
     Indication: GLAUCOMA

REACTIONS (3)
  - BLOOD PRESSURE INADEQUATELY CONTROLLED [None]
  - BLOOD PRESSURE INCREASED [None]
  - HYPOAESTHESIA [None]
